FAERS Safety Report 6275057-6 (Version None)
Quarter: 2009Q3

REPORT INFORMATION
  Report Type: 
  Country: None (occurrence: None)
  Receive Date: 20090721
  Receipt Date: 20090714
  Transmission Date: 20100115
  Serious: Yes (Hospitalization, Other)
  Sender: FDA-Public Use
  Company Number: US-ROCHE-640699

PATIENT
  Age: 74 Year
  Sex: Female

DRUGS (1)
  1. BONIVA [Suspect]
     Indication: DRUG USE FOR UNKNOWN INDICATION
     Route: 065

REACTIONS (5)
  - CONTUSION [None]
  - INTERNAL INJURY [None]
  - PERONEAL NERVE PALSY [None]
  - ROAD TRAFFIC ACCIDENT [None]
  - SHOULDER ARTHROPLASTY [None]
